FAERS Safety Report 16174899 (Version 1)
Quarter: 2019Q2

REPORT INFORMATION
  Report Type: Spontaneous
  Country: US (occurrence: US)
  Receive Date: 20190409
  Receipt Date: 20190409
  Transmission Date: 20190711
  Serious: Yes (Disabling, Other)
  Sender: FDA-Public Use
  Company Number: US-PFIZER INC-2019140097

PATIENT
  Age: 53 Year
  Sex: Female

DRUGS (2)
  1. ELIQUIS [Suspect]
     Active Substance: APIXABAN
     Dosage: UNK
     Route: 065
  2. LYRICA [Suspect]
     Active Substance: PREGABALIN
     Indication: KNEE OPERATION
     Dosage: UNK
     Route: 065

REACTIONS (3)
  - Burning sensation [Unknown]
  - Lower limb fracture [Not Recovered/Not Resolved]
  - Neuralgia [Unknown]
